FAERS Safety Report 20130626 (Version 1)
Quarter: 2021Q4

REPORT INFORMATION
  Report Type: Spontaneous
  Country: CN (occurrence: CN)
  Receive Date: 20211130
  Receipt Date: 20211130
  Transmission Date: 20220303
  Serious: Yes (Other)
  Sender: FDA-Public Use
  Company Number: CN-Accord-245848

PATIENT
  Age: 17 Year
  Sex: Female

DRUGS (6)
  1. ETOPOSIDE [Suspect]
     Active Substance: ETOPOSIDE
     Indication: Choriocarcinoma
  2. METHOTREXATE [Suspect]
     Active Substance: METHOTREXATE
     Indication: Choriocarcinoma
     Dosage: FOLLOWED BY METHOTREXATE 200 MG/M2 OVER 12 H DAY 1, HIGHER DOSES OF METHOTREXATE
  3. ACTINOMYCIN D [Suspect]
     Active Substance: DACTINOMYCIN
     Indication: Choriocarcinoma
     Dosage: DAYS 1 AND 2
  4. LEUCOVORIN [Suspect]
     Active Substance: LEUCOVORIN
     Indication: Choriocarcinoma
     Dosage: EVERY 12 H DAYS 2 AND 3
     Route: 030
  5. CYCLOPHOSPHAMIDE [Suspect]
     Active Substance: CYCLOPHOSPHAMIDE
     Indication: Choriocarcinoma
  6. VINCRISTINE [Suspect]
     Active Substance: VINCRISTINE
     Indication: Choriocarcinoma
     Dosage: DAY 8, EVERY 14 DAYS.

REACTIONS (7)
  - Uterine haemorrhage [Unknown]
  - Alopecia [Unknown]
  - Hepatic function abnormal [Unknown]
  - Aphthous ulcer [Unknown]
  - Nausea [Unknown]
  - Vomiting [Unknown]
  - Granulocytopenia [Unknown]
